FAERS Safety Report 20006481 (Version 1)
Quarter: 2021Q4

REPORT INFORMATION
  Report Type: Spontaneous
  Country: US (occurrence: US)
  Receive Date: 20211028
  Receipt Date: 20211028
  Transmission Date: 20220303
  Serious: Yes (Hospitalization)
  Sender: FDA-Public Use
  Company Number: None

PATIENT
  Sex: Female

DRUGS (2)
  1. CAPECITABINE [Suspect]
     Active Substance: CAPECITABINE
  2. TUKYSA [Concomitant]
     Active Substance: TUCATINIB
     Dates: start: 20210929

REACTIONS (2)
  - Adverse drug reaction [None]
  - Dehydration [None]
